FAERS Safety Report 15454216 (Version 1)
Quarter: 2018Q4

REPORT INFORMATION
  Report Type: Spontaneous
  Country: US (occurrence: US)
  Receive Date: 20181002
  Receipt Date: 20181002
  Transmission Date: 20190204
  Serious: Yes (Hospitalization)
  Sender: FDA-Public Use
  Company Number: US-HORIZON-NVC-PRO-0189-2018

PATIENT
  Age: 9 Year
  Sex: Male

DRUGS (12)
  1. CALCIUM CARBONATE. [Concomitant]
     Active Substance: CALCIUM CARBONATE
  2. PROCYSBI [Suspect]
     Active Substance: CYSTEAMINE BITARTRATE
     Indication: CYSTINOSIS
     Dosage: 600 MG TWICE DAILY
  3. ZOFRAN [Concomitant]
     Active Substance: ONDANSETRON HYDROCHLORIDE
  4. CALCITRIOL. [Concomitant]
     Active Substance: CALCITRIOL
  5. ZYRTEC [Concomitant]
     Active Substance: CETIRIZINE HYDROCHLORIDE
  6. PROCRIT [Concomitant]
     Active Substance: ERYTHROPOIETIN
  7. LABETOLOL [Concomitant]
     Active Substance: LABETALOL HYDROCHLORIDE
  8. FOSAMAX [Concomitant]
     Active Substance: ALENDRONATE SODIUM
  9. CARNITOR [Concomitant]
     Active Substance: LEVOCARNITINE
  10. FERROUS SULFATE. [Concomitant]
     Active Substance: FERROUS SULFATE
  11. CYSTEAMINE EYE DROPS [Concomitant]
  12. CITRA-K [Concomitant]

REACTIONS (2)
  - Dialysis [Unknown]
  - Chronic kidney disease [Not Recovered/Not Resolved]
